FAERS Safety Report 7992024-2 (Version None)
Quarter: 2011Q4

REPORT INFORMATION
  Report Type: 
  Country: None (occurrence: None)
  Receive Date: 20111219
  Receipt Date: 20111021
  Transmission Date: 20120403
  Serious: No
  Sender: FDA-Public Use
  Company Number: US-ASTRAZENECA-2011SE63746

PATIENT
  Sex: Female

DRUGS (2)
  1. INDERAL [Suspect]
     Route: 065
  2. CRESTOR [Suspect]
     Route: 048

REACTIONS (2)
  - MUCOUS STOOLS [None]
  - BALANCE DISORDER [None]
